FAERS Safety Report 6652378-6 (Version None)
Quarter: 2010Q1

REPORT INFORMATION
  Report Type: 
  Country: None (occurrence: None)
  Receive Date: 20100325
  Receipt Date: 20100318
  Transmission Date: 20100710
  Serious: Yes (Life-Threatening, Hospitalization)
  Sender: FDA-Public Use
  Company Number: JP-ROCHE-682026

PATIENT
  Sex: Male
  Weight: 55 kg

DRUGS (14)
  1. AVASTIN [Suspect]
     Indication: COLON CANCER METASTATIC
     Route: 041
     Dates: start: 20091125, end: 20091125
  2. AVASTIN [Suspect]
     Route: 041
     Dates: start: 20091211, end: 20091211
  3. ELPLAT [Concomitant]
     Route: 041
     Dates: start: 20091211, end: 20091211
  4. FLUOROURACIL [Concomitant]
     Route: 040
  5. FLUOROURACIL [Concomitant]
     Route: 040
     Dates: start: 20091211, end: 20091211
  6. FLUOROURACIL [Concomitant]
     Route: 041
  7. FLUOROURACIL [Concomitant]
     Route: 041
     Dates: start: 20091211, end: 20091213
  8. LEVOFOLINATE [Concomitant]
     Route: 041
  9. LEVOFOLINATE [Concomitant]
     Route: 041
     Dates: start: 20091211, end: 20091211
  10. KYTRIL [Concomitant]
     Route: 041
     Dates: start: 20091211, end: 20091211
  11. DECADRON [Concomitant]
     Route: 041
     Dates: start: 20091211, end: 20091211
  12. MICARDIS [Concomitant]
     Route: 048
  13. GLIMICRON [Concomitant]
     Route: 048
  14. LOXONIN [Concomitant]
     Dosage: NOTE: TAKEN AS NEEDED
     Route: 048

REACTIONS (4)
  - DISSEMINATED INTRAVASCULAR COAGULATION [None]
  - INTESTINAL PERFORATION [None]
  - PERITONITIS [None]
  - SEPSIS [None]
